FAERS Safety Report 12219278 (Version 1)
Quarter: 2016Q1

REPORT INFORMATION
  Report Type: Spontaneous
  Country: US (occurrence: US)
  Receive Date: 20160329
  Receipt Date: 20160329
  Transmission Date: 20160526
  Serious: Yes (Hospitalization, Other)
  Sender: FDA-Public Use
  Company Number: PHHY2016US026034

PATIENT
  Age: 51 Year
  Sex: Female

DRUGS (47)
  1. BACLOFEN INTRATHECAL [Suspect]
     Active Substance: BACLOFEN
     Dosage: 125 MG, QD (215 MCG/ML)
     Dates: start: 20150507
  2. BACLOFEN INTRATHECAL [Suspect]
     Active Substance: BACLOFEN
     Dosage: 125.27 UG, QD (215 MCG/ML)
     Route: 037
     Dates: start: 20150826, end: 20150828
  3. TEMAZEPAM. [Suspect]
     Active Substance: TEMAZEPAM
     Indication: PRODUCT USED FOR UNKNOWN INDICATION
     Dosage: 30 MG, QD (AT BEDTIME AS NEEDED)
     Route: 048
  4. BUPIVACAINE [Suspect]
     Active Substance: BUPIVACAINE
     Dosage: 10.4 MG, QD (17.9 MG/ML)
     Route: 037
     Dates: start: 20140930, end: 20150826
  5. SUFENTA [Suspect]
     Active Substance: SUFENTANIL CITRATE
     Dosage: 190 UG, QD(315MCG/ML)
     Route: 037
     Dates: start: 20140930
  6. SUFENTA [Suspect]
     Active Substance: SUFENTANIL CITRATE
     Dosage: 169.92 UG, QD (275 MCG/ML)
     Route: 037
     Dates: start: 20150806, end: 20150826
  7. PRIALT [Suspect]
     Active Substance: ZICONOTIDE ACETATE
     Dosage: 1.035 UG, QD (1.5MCG/ML)
     Route: 037
     Dates: start: 20150917, end: 20150923
  8. BACLOFEN INTRATHECAL [Suspect]
     Active Substance: BACLOFEN
     Dosage: 200.20 UG, QD (324 MCG/ML)
     Route: 037
     Dates: start: 20150806, end: 20150826
  9. BUPIVACAINE [Suspect]
     Active Substance: BUPIVACAINE
     Dosage: 3.015 MG, QD (4.6MG/ML)
     Route: 037
     Dates: start: 20150828
  10. SUFENTA [Suspect]
     Active Substance: SUFENTANIL CITRATE
     Dosage: 160.23 UG, QD (275 MCG/ML)
     Route: 037
     Dates: start: 20150826, end: 20150828
  11. BACLOFEN INTRATHECAL [Suspect]
     Active Substance: BACLOFEN
     Dosage: 125 UG, QD(215MCG/ML)
     Route: 037
     Dates: start: 20150507
  12. BACLOFEN INTRATHECAL [Suspect]
     Active Substance: BACLOFEN
     Dosage: 132 UG, QD (219 MCG/ML)
     Route: 037
     Dates: start: 20150507, end: 20151104
  13. TIZANIDINE. [Suspect]
     Active Substance: TIZANIDINE
     Indication: PRODUCT USED FOR UNKNOWN INDICATION
     Dosage: 2 MG, BID
     Route: 048
  14. BUPIVACAINE [Suspect]
     Active Substance: BUPIVACAINE
     Dosage: 3 MG, QD (5 MG/ML)
     Route: 037
     Dates: start: 20151223, end: 20160216
  15. SUFENTA [Suspect]
     Active Substance: SUFENTANIL CITRATE
     Indication: PRODUCT USED FOR UNKNOWN INDICATION
     Dosage: 70 UG, QD (250 MCG/ML)
     Route: 037
  16. SUFENTA [Suspect]
     Active Substance: SUFENTANIL CITRATE
     Dosage: 160.23 UG, QD (275MCG/ML)
     Route: 037
     Dates: start: 20150826, end: 20150828
  17. PERCOCET [Suspect]
     Active Substance: ACETAMINOPHEN\OXYCODONE HYDROCHLORIDE
     Indication: PRODUCT USED FOR UNKNOWN INDICATION
     Dosage: 1 DF, (5/325MG)
     Route: 048
  18. NUVIGIL [Suspect]
     Active Substance: ARMODAFINIL
     Indication: PRODUCT USED FOR UNKNOWN INDICATION
     Dosage: 150 MG, QD (MORNING)
     Route: 048
  19. DIAZEPAM. [Suspect]
     Active Substance: DIAZEPAM
     Indication: PRODUCT USED FOR UNKNOWN INDICATION
     Dosage: 5 MG, BID
     Route: 048
     Dates: start: 20140309
  20. LEVETIRACETAM. [Suspect]
     Active Substance: LEVETIRACETAM
     Indication: PRODUCT USED FOR UNKNOWN INDICATION
     Dosage: 500 MG, QD
     Route: 048
  21. SUFENTA [Suspect]
     Active Substance: SUFENTANIL CITRATE
     Dosage: 190 UG, QD (275MCG/ML)
     Route: 037
     Dates: start: 20150923, end: 20151104
  22. PREMARIN [Suspect]
     Active Substance: ESTROGENS, CONJUGATED
     Indication: PRODUCT USED FOR UNKNOWN INDICATION
     Dosage: 1.25 MG, QD
     Route: 048
  23. BACLOFEN INTRATHECAL [Suspect]
     Active Substance: BACLOFEN
     Indication: SPINAL PAIN
     Dosage: 132 UG, QD(191MCG/ML)
     Route: 037
     Dates: start: 20150507
  24. BUPIVACAINE [Suspect]
     Active Substance: BUPIVACAINE
     Dosage: 7 MG, QD(11.3MG/ML)
     Route: 037
     Dates: start: 20140930, end: 20150826
  25. SUFENTA [Suspect]
     Active Substance: SUFENTANIL CITRATE
     Dosage: 160 UG, QD (275MCG/ML)
     Route: 037
     Dates: start: 20140930
  26. SUFENTA [Suspect]
     Active Substance: SUFENTANIL CITRATE
     Dosage: 190 UG, QD (275MCG/ML)
     Route: 037
     Dates: start: 20140930
  27. SUFENTA [Suspect]
     Active Substance: SUFENTANIL CITRATE
     Dosage: 189.88 UG, QD (275 MCG/ML)
     Route: 037
     Dates: start: 20150923, end: 20151104
  28. SUFENTA [Suspect]
     Active Substance: SUFENTANIL CITRATE
     Dosage: 190 UG, QD (315 MCG/ML)
     Route: 037
     Dates: start: 20140930
  29. BACLOFEN INTRATHECAL [Suspect]
     Active Substance: BACLOFEN
     Dosage: 132 UG, QD (219 MCG/ML)
     Route: 037
     Dates: start: 20151223
  30. BACLOFEN INTRATHECAL [Suspect]
     Active Substance: BACLOFEN
     Dosage: 132 UG, QD (219 MCG/ML)
     Route: 037
     Dates: start: 20150507
  31. HYDROCHLOROTHIAZIDE. [Suspect]
     Active Substance: HYDROCHLOROTHIAZIDE
     Indication: PRODUCT USED FOR UNKNOWN INDICATION
     Dosage: 25 MG, QD
     Route: 048
  32. FENTANYL. [Suspect]
     Active Substance: FENTANYL
     Indication: PRODUCT USED FOR UNKNOWN INDICATION
     Dosage: UNK
     Route: 037
  33. SUFENTA [Suspect]
     Active Substance: SUFENTANIL CITRATE
     Dosage: 160 UG, QD (275 MCG/ML)
     Route: 037
     Dates: start: 20140930
  34. ABILIFY [Suspect]
     Active Substance: ARIPIPRAZOLE
     Indication: PRODUCT USED FOR UNKNOWN INDICATION
     Dosage: 5 MG, QD
     Route: 048
  35. VALACYCLOVIR [Suspect]
     Active Substance: VALACYCLOVIR HYDROCHLORIDE
     Indication: PRODUCT USED FOR UNKNOWN INDICATION
     Dosage: 1 G, QD
     Route: 048
  36. BACLOFEN INTRATHECAL [Suspect]
     Active Substance: BACLOFEN
     Dosage: 125 UG, QD (191MCG/ML)
     Route: 037
     Dates: start: 20150828
  37. BACLOFEN INTRATHECAL [Suspect]
     Active Substance: BACLOFEN
     Dosage: 131.88 UG, QD (191MCG/ML)
     Route: 037
     Dates: start: 20150923, end: 20151104
  38. PRAMIPEXOLE. [Suspect]
     Active Substance: PRAMIPEXOLE
     Indication: PRODUCT USED FOR UNKNOWN INDICATION
     Dosage: 0.5 MG, QD (2 TO 3 HOURS BEFORE BEDTIME)
     Route: 048
  39. SERTRALINE [Suspect]
     Active Substance: SERTRALINE HYDROCHLORIDE
     Indication: PRODUCT USED FOR UNKNOWN INDICATION
     Dosage: 25 MG, QD
     Route: 048
  40. BUPIVACAINE [Suspect]
     Active Substance: BUPIVACAINE
     Indication: PRODUCT USED FOR UNKNOWN INDICATION
     Dosage: UNK
     Route: 037
  41. SUFENTA [Suspect]
     Active Substance: SUFENTANIL CITRATE
     Dosage: 180.26 UG, QD (275MCG/ML)
     Route: 037
     Dates: start: 20150828
  42. SUFENTA [Suspect]
     Active Substance: SUFENTANIL CITRATE
     Dosage: 190 UG, QD(315MCG/ML)
     Route: 037
     Dates: start: 20151223
  43. PRIALT [Suspect]
     Active Substance: ZICONOTIDE ACETATE
     Indication: PRODUCT USED FOR UNKNOWN INDICATION
     Dosage: 0.524 UG, QD (0.8MCG/ML)
     Route: 037
  44. BACLOFEN. [Suspect]
     Active Substance: BACLOFEN
     Indication: PRODUCT USED FOR UNKNOWN INDICATION
     Dosage: 10 MG, BID
     Route: 048
  45. BUPIVACAINE [Suspect]
     Active Substance: BUPIVACAINE
     Dosage: 6.982 MG, QD(11.3MG/ML)
     Route: 037
     Dates: start: 20150806, end: 20150826
  46. BUPIVACAINE [Suspect]
     Active Substance: BUPIVACAINE
     Dosage: 3.2 MG, QD (4.6MG/ML)
     Route: 037
     Dates: start: 20150828, end: 20150923
  47. LYRICA [Suspect]
     Active Substance: PREGABALIN
     Indication: PRODUCT USED FOR UNKNOWN INDICATION
     Route: 065

REACTIONS (22)
  - Sensory disturbance [Unknown]
  - Pain [Unknown]
  - Oedema peripheral [Unknown]
  - Hyperaesthesia [Unknown]
  - Urinary retention [Unknown]
  - Nausea [Recovered/Resolved]
  - Peripheral swelling [Unknown]
  - Piloerection [Recovered/Resolved]
  - Urinary hesitation [Recovered/Resolved]
  - Hypertension [Unknown]
  - Drug withdrawal syndrome [Recovered/Resolved]
  - Hypotension [Unknown]
  - No therapeutic response [Unknown]
  - Cystitis interstitial [Unknown]
  - Pollakiuria [Unknown]
  - Swelling [Unknown]
  - Therapeutic response unexpected [Unknown]
  - Somnolence [Unknown]
  - Diarrhoea [Recovered/Resolved]
  - Urticaria [Recovered/Resolved]
  - Implant site pain [Unknown]
  - Formication [Recovered/Resolved]

NARRATIVE: CASE EVENT DATE: 20140929
